FAERS Safety Report 11065079 (Version 2)
Quarter: 2015Q2

REPORT INFORMATION
  Report Type: Spontaneous
  Country: US (occurrence: US)
  Receive Date: 20150424
  Receipt Date: 20150525
  Transmission Date: 20150821
  Serious: No
  Sender: FDA-Public Use
  Company Number: US-JNJFOC-20150304143

PATIENT
  Sex: Female
  Weight: 98.88 kg

DRUGS (6)
  1. BACLOFEN. [Concomitant]
     Active Substance: BACLOFEN
     Indication: TOURETTE^S DISORDER
     Route: 065
     Dates: start: 2014
  2. LOVASTATIN. [Concomitant]
     Active Substance: LOVASTATIN
     Indication: MEMORY IMPAIRMENT
     Route: 065
     Dates: start: 2009
  3. ZOLOFT [Concomitant]
     Active Substance: SERTRALINE HYDROCHLORIDE
     Indication: TIC
     Route: 065
     Dates: start: 2009
  4. LEVOTHYROXINE [Concomitant]
     Active Substance: LEVOTHYROXINE
     Indication: THYROID DISORDER
     Route: 065
     Dates: start: 2009
  5. TOPAMAX [Suspect]
     Active Substance: TOPIRAMATE
     Indication: MIGRAINE PROPHYLAXIS
     Route: 048
     Dates: start: 1996
  6. GABAPENTIN. [Concomitant]
     Active Substance: GABAPENTIN
     Indication: RESTLESS LEGS SYNDROME
     Dosage: ONE IN MORNING, ONE IN AFTERNOON AND TWO AT NIGHT
     Route: 065
     Dates: start: 2011

REACTIONS (6)
  - Muscle twitching [Recovered/Resolved]
  - Drug dose omission [Unknown]
  - Menstruation irregular [Not Recovered/Not Resolved]
  - Alopecia [Recovered/Resolved]
  - Drug ineffective [Not Recovered/Not Resolved]
  - Inappropriate schedule of drug administration [Unknown]

NARRATIVE: CASE EVENT DATE: 2013
